FAERS Safety Report 17884990 (Version 1)
Quarter: 2020Q2

REPORT INFORMATION
  Report Type: Spontaneous
  Country: US (occurrence: US)
  Receive Date: 20200611
  Receipt Date: 20200611
  Transmission Date: 20200714
  Serious: Yes (Hospitalization)
  Sender: FDA-Public Use
  Company Number: None

PATIENT
  Age: 55 Year
  Sex: Female
  Weight: 50 kg

DRUGS (3)
  1. HYDROXYCHLOROQUINE 200 MG PO BID [Concomitant]
     Dates: start: 20200527, end: 20200604
  2. TOCILIZUMAB 400 MG IV X1 [Concomitant]
     Dates: start: 20200607, end: 20200607
  3. REMDESIVIR. [Suspect]
     Active Substance: REMDESIVIR
     Indication: SARS-COV-2 TEST POSITIVE
     Route: 040
     Dates: start: 20200608, end: 20200610

REACTIONS (2)
  - Blood creatinine increased [None]
  - Glomerular filtration rate increased [None]

NARRATIVE: CASE EVENT DATE: 20200610
